FAERS Safety Report 7451176-3 (Version None)
Quarter: 2011Q2

REPORT INFORMATION
  Report Type: 
  Country: None (occurrence: None)
  Receive Date: 20110502
  Receipt Date: 20110422
  Transmission Date: 20111010
  Serious: Yes (Hospitalization, Disabling, Other)
  Sender: FDA-Public Use
  Company Number: PHHY2011US27435

PATIENT
  Sex: Male
  Weight: 182 kg

DRUGS (6)
  1. PROGRAF [Concomitant]
     Indication: TRANSPLANT
     Dosage: UNK
     Route: 048
     Dates: start: 20060413
  2. SENSIPAR [Concomitant]
     Indication: HYPERCALCAEMIA
     Dosage: UNK
     Route: 048
     Dates: start: 20081228
  3. TOPROL-XL [Concomitant]
     Dosage: UNK
     Route: 048
     Dates: start: 20061002
  4. PRAVASTATIN [Concomitant]
     Indication: HYPERCHOLESTEROLAEMIA
     Dosage: UNK
     Route: 048
     Dates: start: 20060413
  5. MYFORTIC [Suspect]
     Indication: RENAL TRANSPLANT
     Dosage: 180 MG, BID
     Route: 048
     Dates: start: 20060512
  6. PREDNISONE [Concomitant]
     Indication: TRANSPLANT
     Dosage: UNK
     Route: 048
     Dates: start: 20060413

REACTIONS (13)
  - VISUAL ACUITY TESTS ABNORMAL [None]
  - SUPRAVENTRICULAR TACHYCARDIA [None]
  - MENTAL STATUS CHANGES [None]
  - RENAL ARTERY STENOSIS [None]
  - DYSPNOEA [None]
  - TRANSPLANT REJECTION [None]
  - VASOGENIC CEREBRAL OEDEMA [None]
  - BLINDNESS [None]
  - RENAL FAILURE [None]
  - CEREBRAL HAEMORRHAGE [None]
  - OLIGURIA [None]
  - RENAL TUBULAR NECROSIS [None]
  - EFFUSION [None]
